FAERS Safety Report 7496147-6 (Version None)
Quarter: 2011Q2

REPORT INFORMATION
  Report Type: 
  Country: None (occurrence: None)
  Receive Date: 20110523
  Receipt Date: 20110509
  Transmission Date: 20111010
  Serious: Yes (Other)
  Sender: FDA-Public Use
  Company Number: PHHY2011BR40342

PATIENT
  Sex: Male
  Weight: 96 kg

DRUGS (3)
  1. LAMOTRIGINE [Concomitant]
     Indication: DEPRESSION
     Dosage: 100 MG, UNK
  2. DIOVAN HCT [Suspect]
     Indication: HYPERTENSION
     Dosage: 160 MG VALS AND 12.5 MG HYDR (1 DF DAILY)
     Route: 048
     Dates: start: 20100801
  3. CEBRILIN [Concomitant]
     Indication: DEPRESSION
     Dosage: 20 MG, UNK

REACTIONS (3)
  - BLOOD PRESSURE INCREASED [None]
  - WEIGHT INCREASED [None]
  - ARTERIAL OCCLUSIVE DISEASE [None]
